FAERS Safety Report 13010428 (Version 4)
Quarter: 2018Q1

REPORT INFORMATION
  Report Type: Spontaneous
  Country: US (occurrence: US)
  Receive Date: 20161208
  Receipt Date: 20180110
  Transmission Date: 20180508
  Serious: No
  Sender: FDA-Public Use
  Company Number: US-PFIZER INC-2016561909

PATIENT
  Age: 73 Year
  Sex: Female
  Weight: 81.65 kg

DRUGS (1)
  1. LATANOPROST. [Suspect]
     Active Substance: LATANOPROST
     Indication: GLAUCOMA
     Dosage: 1 GTT, 1X/DAY (AT NIGHT)

REACTIONS (5)
  - Swelling face [Recovered/Resolved]
  - Drug intolerance [Unknown]
  - Eye swelling [Unknown]
  - Drug hypersensitivity [Unknown]
  - Lip swelling [Recovered/Resolved]
